FAERS Safety Report 11185576 (Version 1)
Quarter: 2015Q2

REPORT INFORMATION
  Report Type: Spontaneous
  Country: US (occurrence: US)
  Receive Date: 20150612
  Receipt Date: 20150612
  Transmission Date: 20150821
  Serious: No
  Sender: FDA-Public Use
  Company Number: US-DSJP-DSU-2014-125825

PATIENT
  Age: 80 Year
  Sex: Female

DRUGS (1)
  1. BENICAR [Suspect]
     Active Substance: OLMESARTAN MEDOXOMIL
     Indication: HYPERTENSION
     Dosage: 1/2 (20 MG), QD
     Route: 048

REACTIONS (2)
  - Malabsorption [Recovered/Resolved]
  - Drug administration error [Recovered/Resolved]
